FAERS Safety Report 10970633 (Version 1)
Quarter: 2015Q1

REPORT INFORMATION
  Report Type: Spontaneous
  Country: DK (occurrence: DK)
  Receive Date: 20150331
  Receipt Date: 20150331
  Transmission Date: 20150721
  Serious: Yes (Other)
  Sender: FDA-Public Use
  Company Number: PHHY2015DK029427

PATIENT
  Age: 25 Year
  Sex: Female

DRUGS (1)
  1. MALONETTA [Suspect]
     Active Substance: ETHINYL ESTRADIOL\LEVONORGESTREL
     Indication: CONTRACEPTION
     Dosage: 1 DF, UNK
     Route: 048
     Dates: end: 201410

REACTIONS (3)
  - Visual acuity reduced [Not Recovered/Not Resolved]
  - Dyspnoea [Unknown]
  - Retinal vascular thrombosis [Recovered/Resolved]

NARRATIVE: CASE EVENT DATE: 20141007
